FAERS Safety Report 7794809-4 (Version None)
Quarter: 2011Q4

REPORT INFORMATION
  Report Type: 
  Country: None (occurrence: None)
  Receive Date: 20111004
  Receipt Date: 20111001
  Transmission Date: 20120403
  Serious: No
  Sender: FDA-Public Use
  Company Number: US-PFIZER INC-2011234672

PATIENT
  Sex: Female
  Weight: 61 kg

DRUGS (4)
  1. TOPAMAX [Concomitant]
     Indication: HEADACHE
     Dosage: 25 MG, DAILY
     Route: 048
  2. ACIPHEX [Concomitant]
     Indication: GASTROOESOPHAGEAL REFLUX DISEASE
     Dosage: 20 MG, DAILY
     Route: 048
  3. CHANTIX [Suspect]
     Indication: SMOKING CESSATION THERAPY
     Dosage: 1 MG, 2X/DAY
     Route: 048
     Dates: start: 20110501
  4. ACYCLOVIR [Concomitant]
     Indication: HERPES VIRUS INFECTION
     Dosage: 400 MG, DAILY
     Route: 048

REACTIONS (2)
  - DYSGEUSIA [None]
  - SLEEP DISORDER [None]
